FAERS Safety Report 4733889-7 (Version None)
Quarter: 2005Q3

REPORT INFORMATION
  Report Type: 
  Country: None (occurrence: None)
  Receive Date: 20050803
  Receipt Date: 20050629
  Transmission Date: 20060218
  Serious: Yes (Life-Threatening, Hospitalization)
  Sender: FDA-Public Use
  Company Number: JP-MERCK-0507USA00218

PATIENT
  Age: 19 Year
  Sex: Male

DRUGS (8)
  1. PRIMAXIN [Suspect]
     Indication: INFECTION
     Route: 042
     Dates: start: 20040802, end: 20040805
  2. PRODIF [Concomitant]
     Indication: STAPHYLOCOCCAL INFECTION
     Route: 042
  3. PRODIF [Concomitant]
     Indication: FUNGAL INFECTION
     Route: 042
  4. CIPROFLOXACIN [Concomitant]
     Indication: STAPHYLOCOCCAL INFECTION
     Route: 065
  5. CIPROFLOXACIN [Concomitant]
     Indication: FUNGAL INFECTION
     Route: 065
  6. TARGOCID [Concomitant]
     Indication: STAPHYLOCOCCAL INFECTION
     Route: 042
  7. TARGOCID [Concomitant]
     Indication: FUNGAL INFECTION
     Route: 042
  8. FLUMARIN [Concomitant]
     Indication: INFECTION PROPHYLAXIS
     Route: 042
     Dates: start: 20040730, end: 20040801

REACTIONS (6)
  - EYE INFECTION FUNGAL [None]
  - FUNGAL INFECTION [None]
  - POSTOPERATIVE FEVER [None]
  - RESPIRATORY FAILURE [None]
  - STAPHYLOCOCCAL INFECTION [None]
  - SYSTEMIC CANDIDA [None]
